FAERS Safety Report 21812113 (Version 1)
Quarter: 2023Q1

REPORT INFORMATION
  Report Type: Spontaneous
  Country: CN (occurrence: CN)
  Receive Date: 20230103
  Receipt Date: 20230103
  Transmission Date: 20230417
  Serious: Yes (Other)
  Sender: FDA-Public Use
  Company Number: CN-JNJFOC-20221263676

PATIENT

DRUGS (1)
  1. IBUPROFEN [Suspect]
     Active Substance: IBUPROFEN
     Indication: Patent ductus arteriosus
     Dosage: 4 ML/TIME, TWICE A DAY WITH 1 WEEK CORSE OF TREATEMENT
     Route: 048

REACTIONS (3)
  - Off label use [Unknown]
  - Renal impairment [Unknown]
  - Gastrointestinal disorder [Unknown]
